FAERS Safety Report 7268620-7 (Version None)
Quarter: 2010Q4

REPORT INFORMATION
  Report Type: 
  Country: None (occurrence: None)
  Receive Date: 20101206
  Receipt Date: 20100921
  Transmission Date: 20110411
  Serious: No
  Sender: FDA-Public Use
  Company Number: 2010SP050979

PATIENT
  Age: 25 Year
  Sex: Female

DRUGS (3)
  1. SAPHRIS [Suspect]
     Indication: BIPOLAR DISORDER
     Dosage: 10 MG; BID; SL
     Route: 060
  2. XANAX [Concomitant]
  3. GEODAN (GEODON) [Concomitant]

REACTIONS (2)
  - MYALGIA [None]
  - PAIN [None]
